FAERS Safety Report 5470026-8 (Version None)
Quarter: 2007Q3

REPORT INFORMATION
  Report Type: 
  Country: None (occurrence: None)
  Receive Date: 20070927
  Receipt Date: 20070917
  Transmission Date: 20080115
  Serious: Yes (Other)
  Sender: FDA-Public Use
  Company Number: GB-PFIZER INC-2007067291

PATIENT
  Age: 67 Year
  Sex: Male

DRUGS (9)
  1. METHYLPREDNISOLONE ACETATE [Suspect]
     Indication: PERIPHERAL T-CELL LYMPHOMA UNSPECIFIED
  2. CISPLATIN [Suspect]
     Indication: PERIPHERAL T-CELL LYMPHOMA UNSPECIFIED
  3. GEMCITABINE HCL [Suspect]
     Indication: PERIPHERAL T-CELL LYMPHOMA UNSPECIFIED
     Dosage: TEXT:1G/M2-FREQ:DAY 1-8-15 EVERY 28 DAYS
  4. BLEOMYCIN [Concomitant]
  5. CYCLOPHOSPHAMIDE [Concomitant]
  6. GEMCITABINE HCL [Concomitant]
  7. METHOTREXATE [Concomitant]
  8. PREDNISOLONE [Concomitant]
  9. VINCRISTINE [Concomitant]

REACTIONS (2)
  - BLOOD BILIRUBIN INCREASED [None]
  - NEUTROPENIA [None]
